FAERS Safety Report 5768604-1 (Version None)
Quarter: 2008Q2

REPORT INFORMATION
  Report Type: 
  Country: None (occurrence: None)
  Receive Date: 20080612
  Receipt Date: 20080301
  Transmission Date: 20081010
  Serious: No
  Sender: FDA-Public Use
  Company Number: US-ABBOTT-08P-163-0441669-00

PATIENT
  Sex: Female
  Weight: 58.112 kg

DRUGS (2)
  1. HUMIRA [Suspect]
     Indication: RHEUMATOID ARTHRITIS
     Route: 058
     Dates: start: 20080215
  2. DYE FOR A COMPUTERIZED TOMOGRAPHY [Concomitant]
     Indication: DRUG USE FOR UNKNOWN INDICATION
     Dates: start: 20080227

REACTIONS (4)
  - ASTHENIA [None]
  - DIZZINESS [None]
  - NAUSEA [None]
  - TREMOR [None]
